FAERS Safety Report 13845038 (Version 6)
Quarter: 2017Q4

REPORT INFORMATION
  Report Type: Report from Study
  Country: CO (occurrence: CO)
  Receive Date: 20170808
  Receipt Date: 20171022
  Transmission Date: 20180320
  Serious: Yes (Death, Hospitalization)
  Sender: FDA-Public Use
  Company Number: PHHY2017CO115803

PATIENT
  Age: 57 Year
  Sex: Male

DRUGS (1)
  1. ENTRESTO [Suspect]
     Active Substance: SACUBITRIL\VALSARTAN
     Indication: CARDIAC FAILURE
     Dosage: 50 MG (24/26 MG), Q12H
     Route: 048
     Dates: start: 20170707

REACTIONS (8)
  - Death [Fatal]
  - Arrhythmia [Unknown]
  - Hepatitis [Unknown]
  - Dyspnoea [Unknown]
  - Fluid retention [Unknown]
  - Choking [Unknown]
  - Hypotension [Unknown]
  - Herpes virus infection [Unknown]

NARRATIVE: CASE EVENT DATE: 20170930
